FAERS Safety Report 19233909 (Version 1)
Quarter: 2021Q2

REPORT INFORMATION
  Report Type: Report from Study
  Country: None (occurrence: NL)
  Receive Date: 20210508
  Receipt Date: 20210508
  Transmission Date: 20210717
  Serious: Yes (Hospitalization, Other)
  Sender: FDA-Public Use
  Company Number: NL-ABBVIE-21K-114-3894393-00

PATIENT
  Sex: Female

DRUGS (2)
  1. DUODOPA [Suspect]
     Active Substance: CARBIDOPA\LEVODOPA
  2. DUODOPA [Suspect]
     Active Substance: CARBIDOPA\LEVODOPA
     Indication: PARKINSON^S DISEASE
     Dosage: MD 5.3 ML; CD 2.2 ML/H; ED 1.5 ML
     Route: 050
     Dates: start: 20210412

REACTIONS (9)
  - Pain [Not Recovered/Not Resolved]
  - Flatulence [Unknown]
  - Dyskinesia [Not Recovered/Not Resolved]
  - Stoma site inflammation [Not Recovered/Not Resolved]
  - Procedural pain [Not Recovered/Not Resolved]
  - Device difficult to use [Unknown]
  - Peritonitis [Unknown]
  - Discomfort [Unknown]
  - Device issue [Unknown]

NARRATIVE: CASE EVENT DATE: 2021
